FAERS Safety Report 15345147 (Version 1)
Quarter: 2018Q3

REPORT INFORMATION
  Report Type: Spontaneous
  Country: GB (occurrence: GB)
  Receive Date: 20180903
  Receipt Date: 20180903
  Transmission Date: 20181010
  Serious: Yes (Other)
  Sender: FDA-Public Use
  Company Number: PHHY2018GB085503

PATIENT
  Age: 64 Year
  Sex: Female
  Weight: 56.24 kg

DRUGS (1)
  1. DOXYCYCLINE. [Suspect]
     Active Substance: DOXYCYCLINE
     Indication: LYME DISEASE
     Dosage: 200 MG, QD
     Route: 048
     Dates: start: 20180615

REACTIONS (6)
  - Lip ulceration [Recovered/Resolved]
  - Onycholysis [Recovering/Resolving]
  - Skin sensitisation [Recovered/Resolved]
  - Visual field defect [Recovered/Resolved]
  - Paraesthesia [Recovered/Resolved]
  - Photosensitivity reaction [Recovered/Resolved]

NARRATIVE: CASE EVENT DATE: 20180623
